FAERS Safety Report 9312480 (Version 3)
Quarter: 2013Q2

REPORT INFORMATION
  Report Type: Report from Study
  Country: PR (occurrence: PR)
  Receive Date: 20130528
  Receipt Date: 20130628
  Transmission Date: 20140414
  Serious: Yes (Hospitalization)
  Sender: FDA-Public Use
  Company Number: PR-ABBOTT-13P-131-1094683-00

PATIENT
  Age: 19 Year
  Sex: Female
  Weight: 59.02 kg

DRUGS (3)
  1. HUMIRA [Suspect]
     Indication: SYSTEMIC LUPUS ERYTHEMATOSUS
     Route: 058
     Dates: start: 201302, end: 20130522
  2. ANESTHESIA [Suspect]
     Indication: ANAESTHESIA
     Dates: start: 20130520, end: 20130520
  3. ANESTHESIA [Suspect]
     Indication: CYST DRAINAGE

REACTIONS (7)
  - Rectal obstruction [Recovered/Resolved]
  - Monoparesis [Recovered/Resolved]
  - Rectal abscess [Recovered/Resolved]
  - Furuncle [Recovered/Resolved]
  - Subcutaneous abscess [Recovered/Resolved]
  - Subcutaneous abscess [Not Recovered/Not Resolved]
  - Subcutaneous abscess [Not Recovered/Not Resolved]
